FAERS Safety Report 8765694 (Version 1)
Quarter: 2012Q4

REPORT INFORMATION
  Report Type: 
  Country: JP (occurrence: JP)
  Receive Date: 20120904
  Receipt Date: 20120904
  Transmission Date: 20130627
  Serious: Yes (Other)
  Sender: FDA-Public Use
  Company Number: PHHY2012JP074116

PATIENT
  Age: 7 Year
  Sex: Female

DRUGS (4)
  1. CICLOSPORIN [Suspect]
     Indication: APLASTIC ANAEMIA
     Dosage: 60 mg, BID
  2. METHYLPREDNISOLONE [Concomitant]
     Indication: APLASTIC ANAEMIA
     Dosage: 40 mg/day
  3. GRANULOCYTE COLONY STIMULATING FACTOR [Concomitant]
     Indication: APLASTIC ANAEMIA
  4. ANTITHYMOCYTE IMMUNOGLOBULIN [Concomitant]
     Indication: APLASTIC ANAEMIA

REACTIONS (6)
  - Cerebral vasoconstriction [Recovering/Resolving]
  - Loss of consciousness [Recovering/Resolving]
  - Headache [Recovering/Resolving]
  - Vision blurred [Recovering/Resolving]
  - Cerebral haemorrhage [Recovering/Resolving]
  - Blood pressure increased [Recovering/Resolving]
